FAERS Safety Report 16590373 (Version 1)
Quarter: 2019Q3

REPORT INFORMATION
  Report Type: Spontaneous
  Country: US (occurrence: US)
  Receive Date: 20190717
  Receipt Date: 20190717
  Transmission Date: 20191004
  Serious: No
  Sender: FDA-Public Use
  Company Number: None

PATIENT
  Age: 56 Year
  Sex: Male

DRUGS (7)
  1. ENALIPRIL [Concomitant]
  2. ATORVASTATIN [Concomitant]
     Active Substance: ATORVASTATIN
  3. METFORMIN [Concomitant]
     Active Substance: METFORMIN HYDROCHLORIDE
  4. ASPIRIN. [Concomitant]
     Active Substance: ASPIRIN
  5. PIOGLITAZONE. [Concomitant]
     Active Substance: PIOGLITAZONE
  6. INSULIN [Concomitant]
     Active Substance: INSULIN NOS
  7. BASAGLAR [Suspect]
     Active Substance: INSULIN GLARGINE
     Indication: DIABETES MELLITUS
     Dosage: ?          OTHER STRENGTH:100 UNITS PER ML;QUANTITY:62 INJECTION(S);?
     Route: 058
     Dates: start: 20190708, end: 20190709

REACTIONS (5)
  - Muscle spasms [None]
  - Blood creatine phosphokinase increased [None]
  - Blood potassium decreased [None]
  - Product substitution issue [None]
  - Hypersensitivity [None]

NARRATIVE: CASE EVENT DATE: 20190709
